FAERS Safety Report 7044903-0 (Version None)
Quarter: 2010Q4

REPORT INFORMATION
  Report Type: 
  Country: None (occurrence: None)
  Receive Date: 20101014
  Receipt Date: 20101006
  Transmission Date: 20110411
  Serious: Yes (Hospitalization, Other)
  Sender: FDA-Public Use
  Company Number: US-JNJFOC-20100602105

PATIENT
  Sex: Female
  Weight: 113.4 kg

DRUGS (2)
  1. ORTHO EVRA [Suspect]
     Indication: CONTRACEPTION
     Route: 062
  2. UNSPECIFIED BIRTH CONTROL PILLS [Suspect]
     Indication: CONTRACEPTION

REACTIONS (2)
  - EMBOLISM ARTERIAL [None]
  - PULMONARY EMBOLISM [None]
